FAERS Safety Report 5801964-1 (Version None)
Quarter: 2008Q3

REPORT INFORMATION
  Report Type: 
  Country: None (occurrence: None)
  Receive Date: 20080702
  Receipt Date: 20080525
  Transmission Date: 20090109
  Serious: Yes (Other)
  Sender: FDA-Public Use
  Company Number: OPER20080071

PATIENT
  Age: 41 Year
  Sex: Male
  Weight: 68.9467 kg

DRUGS (4)
  1. OPANA ER [Suspect]
     Indication: PAIN
     Dosage: 5 MG, DAILY, PER ORAL
     Route: 048
     Dates: start: 20080229, end: 20080302
  2. LANTUS [Concomitant]
  3. FLAGYL [Concomitant]
  4. QUESTRAN/PANCREASE (ANHYDROUS CHOLESTTYRAMINE RESIN) [Concomitant]

REACTIONS (2)
  - COORDINATION ABNORMAL [None]
  - FALL [None]
